FAERS Safety Report 20513764 (Version 1)
Quarter: 2022Q1

REPORT INFORMATION
  Report Type: Spontaneous
  Country: US (occurrence: US)
  Receive Date: 20220224
  Receipt Date: 20220224
  Transmission Date: 20220424
  Serious: No
  Sender: FDA-Public Use
  Company Number: US-AMNEAL PHARMACEUTICALS-2021-AMRX-02484

PATIENT
  Sex: Male
  Weight: 95.23 kg

DRUGS (16)
  1. RYTARY [Suspect]
     Active Substance: CARBIDOPA\LEVODOPA
     Indication: Parkinson^s disease
     Dosage: 3 CAPSULES, QD
     Route: 048
     Dates: start: 20201125, end: 20210126
  2. RYTARY [Suspect]
     Active Substance: CARBIDOPA\LEVODOPA
     Dosage: 6 CAPSULES, DAILY, AT 7AM, 10AM, 1PM, 4PM 7PM AND 10PM
     Route: 048
     Dates: start: 20210126
  3. ESCITALOPRAM OXALATE [Concomitant]
     Active Substance: ESCITALOPRAM OXALATE
     Indication: Anxiety disorder
     Dosage: 10 MILLIGRAM
     Route: 065
  4. ESCITALOPRAM OXALATE [Concomitant]
     Active Substance: ESCITALOPRAM OXALATE
     Dosage: 20 MILLIGRAM
     Route: 065
     Dates: start: 20210204
  5. ESCITALOPRAM OXALATE [Concomitant]
     Active Substance: ESCITALOPRAM OXALATE
     Dosage: 30 MILLIGRAM AT BREAKFAST
     Route: 065
     Dates: start: 20210504
  6. ELIQUIS [Concomitant]
     Active Substance: APIXABAN
     Indication: Product used for unknown indication
     Dosage: 1 TABLETS, 2 /DAY (BREAKFAST AND BEDTIME)
     Route: 065
     Dates: start: 2021
  7. SIMVASTATIN [Concomitant]
     Active Substance: SIMVASTATIN
     Indication: Product used for unknown indication
     Dosage: 40 MILLIGRAM, 1 /DAY, AT SUPPER
     Route: 065
     Dates: start: 2021
  8. LANSOPRAZOLE [Concomitant]
     Active Substance: LANSOPRAZOLE
     Indication: Product used for unknown indication
     Dosage: 1 DOSAGE FORM, 1 /DAY AT LATE MORNING
     Route: 065
     Dates: start: 2021
  9. ASPIRIN [Concomitant]
     Active Substance: ASPIRIN
     Indication: Product used for unknown indication
     Dosage: 81 MILLIGRAM, BEDTIME
     Route: 065
     Dates: start: 2021
  10. VITAMINS [Concomitant]
     Active Substance: VITAMINS
     Indication: Product used for unknown indication
     Dosage: 1 DOSAGE FORM, 1 /DAY IN MORNING
     Route: 065
     Dates: start: 2021
  11. PROBIOTICS NOS [Concomitant]
     Active Substance: PROBIOTICS NOS
     Indication: Product used for unknown indication
     Dosage: 1 DOSAGE FORM, 1 /DAY AFTER SUPPER
     Route: 065
  12. EPIPEN [Concomitant]
     Active Substance: EPINEPHRINE
     Indication: Product used for unknown indication
     Dosage: UNK AS NEEDED
     Route: 065
  13. CLARITIN [Concomitant]
     Active Substance: LORATADINE
     Indication: Product used for unknown indication
     Dosage: UNK, AS NEEDED
     Route: 065
  14. MIRALAX [Concomitant]
     Active Substance: POLYETHYLENE GLYCOL 3350
     Indication: Product used for unknown indication
     Dosage: UNK, AS NEEDED
     Route: 065
  15. FLUTICASONE PROPIONATE [Concomitant]
     Active Substance: FLUTICASONE PROPIONATE
     Indication: Product used for unknown indication
     Dosage: UNK, AS NEEDED
     Route: 045
  16. LORAZEPAM [Concomitant]
     Active Substance: LORAZEPAM
     Indication: Product used for unknown indication
     Dosage: UNK, AS NEEDED BEFORE FLYING
     Route: 065

REACTIONS (3)
  - Freezing phenomenon [Not Recovered/Not Resolved]
  - Therapeutic response shortened [Not Recovered/Not Resolved]
  - Weight increased [Not Recovered/Not Resolved]

NARRATIVE: CASE EVENT DATE: 20210101
